FAERS Safety Report 8227561-9 (Version None)
Quarter: 2012Q1

REPORT INFORMATION
  Report Type: 
  Country: None (occurrence: None)
  Receive Date: 20120322
  Receipt Date: 20120319
  Transmission Date: 20120608
  Serious: Yes (Hospitalization)
  Sender: FDA-Public Use
  Company Number: US-BAYER-2012-018829

PATIENT
  Age: 32 Year
  Sex: Female

DRUGS (9)
  1. NAPROXEN SODIUM AND PSEUDOEPHEDRINE HYDROCHLORIDE [Concomitant]
     Dosage: 500 MG, UNK
     Dates: start: 20100429
  2. DARVOCET [Concomitant]
     Indication: PAIN
     Dosage: UNK
     Dates: start: 20100430
  3. BUTALBITAL ACETAMINOPHEN AND CAFFEINE [Concomitant]
     Indication: MIGRAINE
     Dosage: UNK
     Dates: start: 20100329
  4. MOTRIN [Concomitant]
  5. METOCLOPRAMIDE [Concomitant]
     Dosage: 5 MG, UNK
     Dates: start: 20090328
  6. LYRICA [Concomitant]
     Dosage: 75 MG, UNK
     Dates: start: 20100521
  7. YASMIN [Suspect]
     Dosage: UNK
     Dates: start: 20020101, end: 20100602
  8. HYDROCODONE BITARTRATE AND ACETAMINOPHEN [Concomitant]
     Dosage: UNK
     Dates: start: 20100429
  9. PERCOCET [Concomitant]
     Dosage: UNK
     Dates: start: 20100429, end: 20100521

REACTIONS (5)
  - PAIN [None]
  - PULMONARY EMBOLISM [None]
  - SKIN DISCOLOURATION [None]
  - DEEP VEIN THROMBOSIS [None]
  - OEDEMA PERIPHERAL [None]
